FAERS Safety Report 21653478 (Version 1)
Quarter: 2022Q4

REPORT INFORMATION
  Report Type: Spontaneous
  Country: US (occurrence: US)
  Receive Date: 20221128
  Receipt Date: 20221128
  Transmission Date: 20230113
  Serious: Yes (Life-Threatening, Hospitalization, Other)
  Sender: FDA-Public Use
  Company Number: US-SUN PHARMACEUTICAL INDUSTRIES LTD-2022R1-364136

PATIENT
  Age: 45 Year
  Sex: Male
  Weight: 62.2 kg

DRUGS (1)
  1. AMLODIPINE [Suspect]
     Active Substance: AMLODIPINE BESYLATE
     Indication: Product used for unknown indication
     Dosage: 300 MILLIGRAM
     Route: 065

REACTIONS (6)
  - Overdose [Unknown]
  - Toxicity to various agents [Unknown]
  - Hypotension [Not Recovered/Not Resolved]
  - Bradycardia [Unknown]
  - Cardiogenic shock [Unknown]
  - Ejection fraction decreased [Unknown]
